FAERS Safety Report 9625431 (Version 2)
Quarter: 2013Q4

REPORT INFORMATION
  Report Type: Report from Study
  Country: DE (occurrence: DE)
  Receive Date: 20131016
  Receipt Date: 20131029
  Transmission Date: 20140711
  Serious: Yes (Death)
  Sender: FDA-Public Use
  Company Number: DE-ROCHE-1288191

PATIENT
  Age: 56 Year
  Sex: Female
  Weight: 56 kg

DRUGS (4)
  1. RITUXIMAB [Suspect]
     Indication: CHRONIC LYMPHOCYTIC LEUKAEMIA
     Dosage: DATE OF LAST DOSE PRIOR TO SAE : 13/JUN/2013.
     Route: 042
     Dates: start: 20130206
  2. BENDAMUSTINE [Suspect]
     Indication: CHRONIC LYMPHOCYTIC LEUKAEMIA
     Dosage: DATE OF LAST DOSE PRIOR TO SAE : 14/JUN/2013.
     Route: 042
     Dates: start: 20130207
  3. LENALIDOMIDE [Suspect]
     Indication: CHRONIC LYMPHOCYTIC LEUKAEMIA
     Dosage: DATE OF LAST DOSE PRIOR TO SAE : 06/JUL/2013.
     Route: 048
     Dates: start: 20130214, end: 20130707
  4. VALPROIC ACID [Concomitant]
     Route: 042
     Dates: end: 20130817

REACTIONS (2)
  - Pulmonary sepsis [Fatal]
  - Cardiac arrest [Fatal]
